FAERS Safety Report 19062612 (Version 2)
Quarter: 2021Q2

REPORT INFORMATION
  Report Type: Report from Study
  Country: PL (occurrence: PL)
  Receive Date: 20210326
  Receipt Date: 20210526
  Transmission Date: 20210717
  Serious: Yes (Death)
  Sender: FDA-Public Use
  Company Number: PL-REGENERON PHARMACEUTICALS, INC.-2021-36097

PATIENT

DRUGS (22)
  1. EYLEA [Suspect]
     Active Substance: AFLIBERCEPT
     Dosage: 1 DF, ONCE, EYE UNK
     Dates: start: 20180817, end: 20180817
  2. EYLEA [Suspect]
     Active Substance: AFLIBERCEPT
     Dosage: 1 DF, ONCE, EYE UNK
     Dates: start: 20191211, end: 20191211
  3. EYLEA [Suspect]
     Active Substance: AFLIBERCEPT
     Dosage: UNK, ONCE, LAST INJECTION ADMINISTERED
     Route: 031
     Dates: start: 20201214, end: 20201214
  4. EYLEA [Suspect]
     Active Substance: AFLIBERCEPT
     Dosage: 1 DF, ONCE, EYE UNK
     Dates: start: 20160819, end: 20160819
  5. EYLEA [Suspect]
     Active Substance: AFLIBERCEPT
     Dosage: 1 DF, ONCE, EYE UNK
     Dates: start: 20180430, end: 20180430
  6. EYLEA [Suspect]
     Active Substance: AFLIBERCEPT
     Dosage: 1 DF, ONCE, EYE UNK
     Dates: start: 20190313, end: 20190313
  7. EYLEA [Suspect]
     Active Substance: AFLIBERCEPT
     Dosage: 1 DF, ONCE, EYE UNK
     Dates: start: 20200728, end: 20200728
  8. EYLEA [Suspect]
     Active Substance: AFLIBERCEPT
     Dosage: 1 DF, ONCE, EYE UNK
     Dates: start: 20200903, end: 20200903
  9. EYLEA [Suspect]
     Active Substance: AFLIBERCEPT
     Dosage: 1 DF, ONCE, EYE UNK
     Dates: start: 20170120, end: 20170120
  10. EYLEA [Suspect]
     Active Substance: AFLIBERCEPT
     Dosage: 1 DF, ONCE, EYE UNK
     Dates: start: 20170519, end: 20170519
  11. EYLEA [Suspect]
     Active Substance: AFLIBERCEPT
     Dosage: 1 DF, ONCE, EYE UNK
     Dates: start: 20160208, end: 20160208
  12. EYLEA [Suspect]
     Active Substance: AFLIBERCEPT
     Dosage: 1 DF, ONCE, EYE UNK
     Dates: start: 20190415, end: 20190415
  13. EYLEA [Suspect]
     Active Substance: AFLIBERCEPT
     Indication: NEOVASCULAR AGE-RELATED MACULAR DEGENERATION
     Dosage: 1 DF, ONCE, EYE UNK; TOTAL OF 22 INJECTIONS ADMINISTERED
     Dates: start: 20150911, end: 20150911
  14. EYLEA [Suspect]
     Active Substance: AFLIBERCEPT
     Dosage: 1 DF, ONCE, EYE UNK
     Dates: start: 20160608, end: 20160608
  15. EYLEA [Suspect]
     Active Substance: AFLIBERCEPT
     Dosage: 1 DF, ONCE, EYE UNK
     Dates: start: 20180706, end: 20180706
  16. EYLEA [Suspect]
     Active Substance: AFLIBERCEPT
     Dosage: 2 MG
     Route: 031
     Dates: start: 20151202, end: 20151202
  17. EYLEA [Suspect]
     Active Substance: AFLIBERCEPT
     Dosage: 1 DF, ONCE, EYE UNK
     Dates: start: 20160410, end: 20160410
  18. EYLEA [Suspect]
     Active Substance: AFLIBERCEPT
     Dosage: 1 DF, ONCE, EYE UNK
     Dates: start: 20161017, end: 20161017
  19. EYLEA [Suspect]
     Active Substance: AFLIBERCEPT
     Dosage: 1 DF, ONCE, EYE UNK
     Dates: start: 20170317, end: 20170317
  20. EYLEA [Suspect]
     Active Substance: AFLIBERCEPT
     Dosage: 1 DF, ONCE, EYE UNK
     Dates: start: 20180103, end: 20180103
  21. EYLEA [Suspect]
     Active Substance: AFLIBERCEPT
     Dosage: 1 DF, ONCE, EYE UNK
     Dates: start: 20180307, end: 20180307
  22. EYLEA [Suspect]
     Active Substance: AFLIBERCEPT
     Dosage: 1 DF, ONCE, EYE UNK
     Dates: start: 20181130, end: 20181130

REACTIONS (1)
  - Death [Fatal]

NARRATIVE: CASE EVENT DATE: 20210319
